FAERS Safety Report 6769117-0 (Version None)
Quarter: 2010Q2

REPORT INFORMATION
  Report Type: 
  Country: None (occurrence: None)
  Receive Date: 20100603
  Receipt Date: 20100528
  Transmission Date: 20101027
  Serious: Yes (Life-Threatening, Other)
  Sender: FDA-Public Use
  Company Number: 2010SP008150

PATIENT
  Age: 69 Year
  Sex: Male
  Weight: 93.8946 kg

DRUGS (6)
  1. K-DUR (POTASSIUM CHLORIDE /00031402/) [Suspect]
     Indication: BLOOD POTASSIUM
     Dosage: 20.0 MEQ; PO
     Route: 048
     Dates: start: 20081217, end: 20090702
  2. INDAPAMIDE (CON.) [Concomitant]
  3. NORVASC (CON.) [Concomitant]
  4. PERINDOPRIL (CON.) [Concomitant]
  5. SPIRONOLACTONE (CON.) [Concomitant]
  6. VALSARTAN (CON.) [Concomitant]

REACTIONS (2)
  - CARDIAC FAILURE [None]
  - HAEMOGLOBIN DECREASED [None]
